FAERS Safety Report 4758728-X (Version None)
Quarter: 2005Q3

REPORT INFORMATION
  Report Type: 
  Country: None (occurrence: None)
  Receive Date: 20050826
  Receipt Date: 20050816
  Transmission Date: 20060218
  Serious: Yes (Hospitalization)
  Sender: FDA-Public Use
  Company Number: B0390716A

PATIENT
  Age: 62 Year
  Sex: Male

DRUGS (5)
  1. PAXIL [Suspect]
     Indication: DEPRESSION
     Dosage: 20 MG / PER DAY /
  2. AMLODIPINE [Concomitant]
  3. ASPIRIN [Concomitant]
  4. INT. /LONG-ACTING INSULIN [Concomitant]
  5. HEMODIALYSIS [Concomitant]

REACTIONS (5)
  - BILIARY DILATATION [None]
  - EOSINOPHILIA [None]
  - HAEMOGLOBIN DECREASED [None]
  - HEPATITIS TOXIC [None]
  - PROTHROMBIN TIME PROLONGED [None]
